FAERS Safety Report 16610238 (Version 1)
Quarter: 2019Q3

REPORT INFORMATION
  Report Type: Spontaneous
  Country: US (occurrence: US)
  Receive Date: 20190721
  Receipt Date: 20190721
  Transmission Date: 20191004
  Serious: No
  Sender: FDA-Public Use
  Company Number: None

PATIENT
  Age: 72 Year
  Sex: Female
  Weight: 60.75 kg

DRUGS (12)
  1. EMGALITY [Suspect]
     Active Substance: GALCANEZUMAB-GNLM
     Indication: MIGRAINE PROPHYLAXIS
     Dosage: ??          QUANTITY:1 INJECTION(S);OTHER FREQUENCY:ONCE A MONTH;?
     Route: 030
     Dates: start: 20181101, end: 20190501
  2. FIORINAL [Concomitant]
     Active Substance: ASPIRIN\BUTALBITAL\CAFFEINE
  3. RIBOFLAVIN [Concomitant]
     Active Substance: RIBOFLAVIN
  4. MERTZAPINE [Concomitant]
  5. DIGESTIVE ENZYMES [Concomitant]
     Active Substance: UNSPECIFIED INGREDIENT
  6. BIOTIN [Concomitant]
     Active Substance: BIOTIN
  7. VITAMIN B COMPLEX [Concomitant]
     Active Substance: CYANOCOBALAMIN\DEXPANTHENOL\NIACINAMIDE\PYRIDOXINE HYDROCHLORIDE\RIBOFLAVIN 5^-PHOSPHATE SODIUM\THIAMINE HYDROCHLORIDE\VITAMIN B COMPLEX
  8. MAGNESIUM [Concomitant]
     Active Substance: MAGNESIUM
  9. COQ10 [Concomitant]
     Active Substance: UBIDECARENONE
  10. SYNTHROID [Concomitant]
     Active Substance: LEVOTHYROXINE SODIUM
  11. PRENATAL VITAMINS [Concomitant]
     Active Substance: VITAMINS
  12. PROBIOTICS [Concomitant]
     Active Substance: PROBIOTICS NOS

REACTIONS (8)
  - Abdominal rigidity [None]
  - Diverticulitis [None]
  - Tooth disorder [None]
  - Alopecia [None]
  - Insomnia [None]
  - Immune system disorder [None]
  - Treatment failure [None]
  - Gastrointestinal disorder [None]

NARRATIVE: CASE EVENT DATE: 20190530
